FAERS Safety Report 19838120 (Version 1)
Quarter: 2021Q3

REPORT INFORMATION
  Report Type: Spontaneous
  Country: DE (occurrence: DE)
  Receive Date: 20210916
  Receipt Date: 20210916
  Transmission Date: 20211014
  Serious: Yes (Hospitalization)
  Sender: FDA-Public Use
  Company Number: DE-TEVA-2021-DE-1951489

PATIENT
  Age: 75 Year
  Sex: Male
  Weight: 111 kg

DRUGS (10)
  1. KALIUMCHLORID [Concomitant]
     Active Substance: POTASSIUM CHLORIDE
     Dosage: 4 DOSAGE FORMS DAILY; 600 MG, 2?0?2?0
  2. ACETYLSALICYLSAURE [Concomitant]
     Active Substance: ASPIRIN
     Dosage: 100 MILLIGRAM DAILY;  1?0?0?0
  3. BISOPROLOL [Concomitant]
     Active Substance: BISOPROLOL
     Dosage: 2.5 MILLIGRAM DAILY;  0?0?1?0
  4. TORASEMID [Concomitant]
     Active Substance: TORSEMIDE
     Dosage: 25 MG, 2?1?0?0
  5. INSULIN GLARGIN [Concomitant]
     Active Substance: INSULIN GLARGINE
     Dosage: SCHEME
  6. RISPERIDON [Suspect]
     Active Substance: RISPERIDONE
     Dosage: 1 MILLIGRAM DAILY; 1?0?1?0
  7. METFORMIN/SITAGLIPTIN [Concomitant]
     Active Substance: METFORMIN\SITAGLIPTIN
     Dosage: 1 DOSAGE FORMS DAILY; 500|50 MG, 1?0?0?0
  8. INSULIN ASPART [Concomitant]
     Active Substance: INSULIN ASPART
     Dosage: SCHEME
  9. ATORVASTATIN [Concomitant]
     Active Substance: ATORVASTATIN
     Dosage: 40 MILLIGRAM DAILY;  0?0?1?0
  10. PANTOPRAZOL [Concomitant]
     Active Substance: PANTOPRAZOLE SODIUM
     Dosage: 40 MILLIGRAM DAILY; 1?0?0?0

REACTIONS (13)
  - Oedema peripheral [Recovering/Resolving]
  - Dyspnoea [Recovering/Resolving]
  - Weight increased [Recovering/Resolving]
  - Tachypnoea [Recovering/Resolving]
  - Jaundice [Recovering/Resolving]
  - Pyrexia [Recovering/Resolving]
  - General physical health deterioration [Recovering/Resolving]
  - Wheezing [Recovering/Resolving]
  - Renal impairment [Recovering/Resolving]
  - Systemic infection [Recovering/Resolving]
  - Hyperglycaemia [Recovering/Resolving]
  - Anaemia [Recovering/Resolving]
  - Electrocardiogram abnormal [Recovering/Resolving]
